FAERS Safety Report 8036617-5 (Version None)
Quarter: 2012Q1

REPORT INFORMATION
  Report Type: 
  Country: None (occurrence: None)
  Receive Date: 20120111
  Receipt Date: 20120104
  Transmission Date: 20120608
  Serious: Yes (Hospitalization, Other)
  Sender: FDA-Public Use
  Company Number: PHHY2012FR001215

PATIENT
  Sex: Male
  Weight: 60 kg

DRUGS (12)
  1. KALETRA [Concomitant]
     Dosage: 1 DF, QD
     Route: 048
     Dates: start: 20111104, end: 20111111
  2. VOLTAREN [Suspect]
     Dosage: 100 MG, QID
     Dates: start: 20111102, end: 20111111
  3. POTASSIUM CHLORIDE [Concomitant]
  4. KALETRA [Concomitant]
     Indication: HIV INFECTION
     Route: 048
     Dates: start: 20090201
  5. TRUVADA [Concomitant]
     Indication: HIV INFECTION
     Dosage: 1 DF, QD
     Dates: start: 20090202, end: 20111111
  6. ACETAMINOPHEN [Concomitant]
     Dosage: 8 MG, DAILY
  7. MORPHINE SULFATE [Concomitant]
     Indication: PAIN
     Dosage: 1 DF, 6 TIMES DAILY
  8. SPIRAMYCIN [Concomitant]
     Dosage: 3 MILLIONS IU, TID
  9. CEFTRIAXONE [Concomitant]
     Dosage: 1 G, 24H
  10. BUPRENORPHINE [Concomitant]
     Dosage: 8 MG, DAILY
  11. BACTRIM [Concomitant]
     Indication: INFECTION
     Dosage: 1 DF, QD
     Dates: end: 20111111
  12. CLONAZEPAM [Concomitant]

REACTIONS (12)
  - CONFUSIONAL STATE [None]
  - BLOOD UREA INCREASED [None]
  - ANURIA [None]
  - OVERDOSE [None]
  - HAEMATURIA [None]
  - APLASTIC ANAEMIA [None]
  - NORMOCHROMIC NORMOCYTIC ANAEMIA [None]
  - RENAL FAILURE ACUTE [None]
  - BLOOD CREATININE INCREASED [None]
  - AGITATION [None]
  - METABOLIC ACIDOSIS [None]
  - HYPERKALAEMIA [None]
